FAERS Safety Report 8620878-5 (Version None)
Quarter: 2012Q3

REPORT INFORMATION
  Report Type: 
  Country: None (occurrence: None)
  Receive Date: 20120820
  Receipt Date: 20120820
  Transmission Date: 20120928
  Serious: Yes (Life-Threatening)
  Sender: FDA-Public Use
  Company Number: None

PATIENT
  Age: 74 Year
  Sex: Female
  Weight: 71.8 kg

DRUGS (23)
  1. FENOFIBRATE [Concomitant]
  2. ACETAMINOPHEN AND HYDROCODONE [Concomitant]
  3. GLYBURIDE [Concomitant]
  4. CELEBREX [Concomitant]
  5. ENALAPRIL MALEATE [Concomitant]
  6. CELECOXIB [Concomitant]
  7. INSULIN ASPART [Concomitant]
  8. ACETAMINOPHEN [Concomitant]
  9. ASPIRIN [Concomitant]
  10. WARFARIN SODIUM [Concomitant]
  11. BISACODYL [Concomitant]
  12. DOCUSATE-SENNA [Concomitant]
  13. ENOXAPARIN [Concomitant]
  14. FENTANYL [Concomitant]
  15. CALCIUM AND VITAMIN D [Concomitant]
  16. RIVAROXABAN 10 MG JANSEN PHARMACEUTICALS, [Suspect]
     Dates: start: 20120425, end: 20120425
  17. CEFAZOLIN [Concomitant]
  18. PREGABALIN [Concomitant]
  19. TRAMADOL HCL [Concomitant]
  20. DOCUSATE [Concomitant]
  21. MORPHINE [Concomitant]
  22. ALENDRONATE SODIUM [Concomitant]
  23. FENOFIBRATE [Concomitant]

REACTIONS (1)
  - POST PROCEDURAL PULMONARY EMBOLISM [None]
